FAERS Safety Report 20137825 (Version 1)
Quarter: 2021Q4

REPORT INFORMATION
  Report Type: Spontaneous
  Country: SE (occurrence: SE)
  Receive Date: 20211202
  Receipt Date: 20211202
  Transmission Date: 20220303
  Serious: Yes (Life-Threatening, Hospitalization, Disabling, Other)
  Sender: FDA-Public Use
  Company Number: SE-ABBVIE-21K-150-4180444-00

PATIENT
  Age: 60 Year
  Sex: Female
  Weight: 78 kg

DRUGS (5)
  1. VALPROIC ACID [Suspect]
     Active Substance: VALPROIC ACID
     Indication: Mania
     Route: 065
     Dates: start: 20191111
  2. VALPROIC ACID [Suspect]
     Active Substance: VALPROIC ACID
     Indication: Bipolar disorder
     Route: 065
  3. VENLAFAXINE [Concomitant]
     Active Substance: VENLAFAXINE HYDROCHLORIDE
     Indication: Product used for unknown indication
  4. LEVOTHYROXINE SODIUM [Concomitant]
     Active Substance: LEVOTHYROXINE SODIUM
     Indication: Product used for unknown indication
  5. LITHIUM [Concomitant]
     Active Substance: LITHIUM
     Indication: Product used for unknown indication

REACTIONS (8)
  - Meningioma [Not Recovered/Not Resolved]
  - Balance disorder [Not Recovered/Not Resolved]
  - Migraine [Not Recovered/Not Resolved]
  - Fatigue [Not Recovered/Not Resolved]
  - Suicidal ideation [Not Recovered/Not Resolved]
  - Tremor [Not Recovered/Not Resolved]
  - Depression [Not Recovered/Not Resolved]
  - Dizziness [Not Recovered/Not Resolved]

NARRATIVE: CASE EVENT DATE: 20200101
